FAERS Safety Report 8612078-X (Version None)
Quarter: 2012Q3

REPORT INFORMATION
  Report Type: 
  Country: None (occurrence: None)
  Receive Date: 20120822
  Receipt Date: 20120810
  Transmission Date: 20120928
  Serious: No
  Sender: FDA-Public Use
  Company Number: US-ASTRAZENECA-2010SE28443

PATIENT
  Age: 50 Year
  Sex: Female

DRUGS (5)
  1. CALCIUM CARBONATE [Concomitant]
  2. TOPROL-XL [Suspect]
     Route: 048
  3. NEXIUM [Suspect]
     Route: 048
  4. OVER THE COUNTER MEDICATION [Concomitant]
  5. NEXIUM [Suspect]
     Route: 048

REACTIONS (4)
  - NASOPHARYNGITIS [None]
  - DRUG DOSE OMISSION [None]
  - ADVERSE EVENT [None]
  - SINUS DISORDER [None]
